FAERS Safety Report 18660927 (Version 1)
Quarter: 2020Q4

REPORT INFORMATION
  Report Type: Spontaneous
  Country: US (occurrence: US)
  Receive Date: 20201224
  Receipt Date: 20201224
  Transmission Date: 20210114
  Serious: Yes (Disabling)
  Sender: FDA-Public Use
  Company Number: None

PATIENT
  Age: 36 Year
  Sex: Female
  Weight: 44.45 kg

DRUGS (7)
  1. DOCUSATE SODIUM 100MG [Concomitant]
     Active Substance: DOCUSATE SODIUM
  2. MIRENA [Concomitant]
     Active Substance: LEVONORGESTREL
  3. MAGNESIUM GLYCINATE 200MG [Concomitant]
  4. PSYLLIUM HUSK. [Concomitant]
     Active Substance: PSYLLIUM HUSK
  5. VITAMIN B6 50MG [Concomitant]
  6. MIRENA [Suspect]
     Active Substance: LEVONORGESTREL
  7. GABAPENTIN 100MG [Concomitant]
     Active Substance: GABAPENTIN

REACTIONS (16)
  - Palpitations [None]
  - Insomnia [None]
  - Depression [None]
  - Chest pain [None]
  - Dizziness [None]
  - Complication associated with device [None]
  - Tinnitus [None]
  - Panic attack [None]
  - Vertigo [None]
  - Chest discomfort [None]
  - Nausea [None]
  - Anxiety [None]
  - Headache [None]
  - Affective disorder [None]
  - Vomiting [None]
  - Fatigue [None]

NARRATIVE: CASE EVENT DATE: 20200228
